FAERS Safety Report 5235333-2 (Version None)
Quarter: 2007Q1

REPORT INFORMATION
  Report Type: 
  Country: None (occurrence: None)
  Receive Date: 20070207
  Receipt Date: 20070207
  Transmission Date: 20070707
  Serious: Yes (Hospitalization)
  Sender: FDA-Public Use
  Company Number: None

PATIENT
  Sex: Female
  Weight: 59 kg

DRUGS (7)
  1. GLEEVEC [Suspect]
     Indication: ANAPLASTIC ASTROCYTOMA
     Dosage: 600MG  QD
     Dates: start: 20061220, end: 20070118
  2. HYDROXYUREA [Suspect]
     Indication: ANAPLASTIC ASTROCYTOMA
     Dosage: 500MG  BID
     Dates: start: 20061220, end: 20070118
  3. RAD001 [Suspect]
     Indication: ANAPLASTIC ASTROCYTOMA
     Dosage: 2.5 MG QD
     Dates: start: 20061220, end: 20070118
  4. TEGRETOL [Concomitant]
  5. DECADRON [Concomitant]
  6. CLONOPIN [Concomitant]
  7. KEPPRA [Concomitant]

REACTIONS (7)
  - ALPHA HAEMOLYTIC STREPTOCOCCAL INFECTION [None]
  - HEART RATE INCREASED [None]
  - INFLUENZA LIKE ILLNESS [None]
  - LEUKOPENIA [None]
  - LOBAR PNEUMONIA [None]
  - NEUTROPENIA [None]
  - THROMBOCYTOPENIA [None]
